FAERS Safety Report 17981133 (Version 2)
Quarter: 2020Q4

REPORT INFORMATION
  Report Type: Spontaneous
  Country: US (occurrence: US)
  Receive Date: 20200705
  Receipt Date: 20201015
  Transmission Date: 20210113
  Serious: Yes (Other)
  Sender: FDA-Public Use
  Company Number: US-BEH-2020119412

PATIENT
  Age: 15 Year
  Sex: Male
  Weight: 77.1 kg

DRUGS (3)
  1. HIZENTRA [Suspect]
     Active Substance: HUMAN IMMUNOGLOBULIN G
     Indication: NERVOUS SYSTEM DISORDER
  2. HIZENTRA [Suspect]
     Active Substance: HUMAN IMMUNOGLOBULIN G
     Indication: ANTI-NEURONAL ANTIBODY
  3. HIZENTRA [Suspect]
     Active Substance: HUMAN IMMUNOGLOBULIN G
     Indication: IMMUNODEFICIENCY
     Dosage: 10 GRAM, QW
     Route: 065
     Dates: start: 20200616, end: 20200616

REACTIONS (6)
  - Injection site swelling [Unknown]
  - Product use in unapproved indication [Unknown]
  - Nervous system disorder [Recovered/Resolved]
  - No adverse event [Unknown]
  - Drug ineffective for unapproved indication [Unknown]
  - Injection site swelling [Recovered/Resolved]

NARRATIVE: CASE EVENT DATE: 202006
